FAERS Safety Report 4459392-X (Version None)
Quarter: 2004Q3

REPORT INFORMATION
  Report Type: 
  Country: None (occurrence: None)
  Receive Date: 20040927
  Receipt Date: 20040915
  Transmission Date: 20050211
  Serious: Yes (Hospitalization)
  Sender: FDA-Public Use
  Company Number: PHHO2004JP13052

PATIENT
  Age: 82 Year
  Sex: Male
  Weight: 56 kg

DRUGS (5)
  1. DIOVAN [Suspect]
     Indication: HYPERTENSION
     Dosage: 80 MG, QD
     Route: 048
     Dates: start: 20030606
  2. PREDONINE [Suspect]
     Dosage: 10 MG, QD
     Route: 048
     Dates: start: 20030407
  3. ADALAT [Concomitant]
     Dosage: 10MG DAILY
     Dates: start: 20020607
  4. LONGES [Concomitant]
     Dosage: 10MG DAILY
     Route: 048
     Dates: start: 20020705
  5. WARFARIN SODIUM [Concomitant]
     Dosage: 2.5MG DAILY
     Route: 048
     Dates: start: 20030704

REACTIONS (3)
  - DEEP VEIN THROMBOSIS [None]
  - SWELLING [None]
  - VENA CAVA FILTER INSERTION [None]
